FAERS Safety Report 19999530 (Version 1)
Quarter: 2021Q4

REPORT INFORMATION
  Report Type: Spontaneous
  Country: US (occurrence: US)
  Receive Date: 20211027
  Receipt Date: 20211027
  Transmission Date: 20220303
  Serious: Yes (Other)
  Sender: FDA-Public Use
  Company Number: US-PRA-000142

PATIENT
  Age: 12 Year

DRUGS (5)
  1. METHYLPREDNISOLONE [Suspect]
     Active Substance: METHYLPREDNISOLONE
     Indication: Multisystem inflammatory syndrome in children
     Dosage: INITIAL DOSE: 1 MG/KG/DAY
     Route: 042
  2. METHYLPREDNISOLONE [Suspect]
     Active Substance: METHYLPREDNISOLONE
     Indication: Coronary artery aneurysm
     Dosage: DAY 22-24
     Route: 042
  3. IMMUNE GLOBULIN NOS [Suspect]
     Active Substance: IMMUNE GLOBULIN NOS
     Indication: Multisystem inflammatory syndrome in children
     Dosage: DOSE 1: 2 G/KG
     Route: 042
  4. IMMUNE GLOBULIN NOS [Suspect]
     Active Substance: IMMUNE GLOBULIN NOS
     Indication: Ventricular dysfunction
     Dosage: DOSE 2: 1.5 G/KG
     Route: 042
  5. ENOXAPARIN [Suspect]
     Active Substance: ENOXAPARIN
     Indication: Multisystem inflammatory syndrome in children
     Route: 065

REACTIONS (5)
  - Product use in unapproved indication [Unknown]
  - Hypotension [Unknown]
  - Mental status changes [Unknown]
  - Respiratory failure [Recovered/Resolved]
  - Drug effective for unapproved indication [Unknown]
